FAERS Safety Report 12824132 (Version 9)
Quarter: 2017Q1

REPORT INFORMATION
  Report Type: Report from Study
  Country: NO (occurrence: NO)
  Receive Date: 20161007
  Receipt Date: 20170324
  Transmission Date: 20170428
  Serious: Yes (Death, Hospitalization)
  Sender: FDA-Public Use
  Company Number: NO-009507513-1605NOR003434

PATIENT
  Age: 69 Year
  Sex: Male
  Weight: 66.7 kg

DRUGS (13)
  1. FUROSEMIDE. [Suspect]
     Active Substance: FUROSEMIDE
     Indication: OEDEMA PERIPHERAL
     Dosage: TOTAL DAILY DOSE: 40 MG, FREQUENCY: OTHER
     Route: 048
     Dates: start: 20160420
  2. PEMBROLIZUMAB. [Suspect]
     Active Substance: PEMBROLIZUMAB
     Dosage: 200 MG, Q3W
     Route: 042
     Dates: start: 20160428, end: 20160428
  3. MERITENE [Concomitant]
     Indication: ROUTINE HEALTH MAINTENANCE
     Dosage: TOTAL DAILY DOSE: 300 ML, FREQUENCY: OTHER
     Route: 048
     Dates: start: 20140514
  4. PEMBROLIZUMAB. [Suspect]
     Active Substance: PEMBROLIZUMAB
     Indication: SMALL CELL LUNG CANCER
     Dosage: 200 MG, Q3W
     Route: 042
     Dates: start: 20160318, end: 20160408
  5. NEXIUM [Concomitant]
     Active Substance: ESOMEPRAZOLE MAGNESIUM
     Indication: PROPHYLAXIS
     Dosage: TOTAL DAILY DOSE: 40 MG, PRN
     Route: 048
     Dates: start: 20160223
  6. ZOFRAN [Concomitant]
     Active Substance: ONDANSETRON HYDROCHLORIDE
     Indication: NAUSEA
     Dosage: TOTAL DAILY DOSE: 8 MG, PRN
     Route: 048
     Dates: start: 20140829
  7. FRAGMIN [Concomitant]
     Active Substance: DALTEPARIN SODIUM
     Indication: PULMONARY EMBOLISM
     Dosage: 5000 IU, QD
     Route: 058
     Dates: start: 20140516
  8. CREON (PANCRELIPASE) [Concomitant]
     Indication: PANCREATIC INSUFFICIENCY
     Dosage: TOTAL DAILY DOSE: 2 TABLETS
     Route: 048
     Dates: start: 20150612
  9. OXYNORM [Concomitant]
     Active Substance: OXYCODONE HYDROCHLORIDE
     Indication: PAIN
     Dosage: TOTAL DAILY DOSE: 10 MG, PRN
     Route: 048
     Dates: start: 20151026, end: 20160502
  10. PEPCID [Concomitant]
     Active Substance: FAMOTIDINE
     Indication: DYSPEPSIA
     Dosage: TOTAL DAILY DOSE: 10 MG, PRN
     Route: 048
     Dates: start: 20150424
  11. ACETAMINOPHEN. [Concomitant]
     Active Substance: ACETAMINOPHEN
     Indication: PAIN
     Dosage: TOTAL DAILY DOSE: 4 G, PRN
     Route: 048
     Dates: start: 20140521
  12. TARGINIQ ER [Concomitant]
     Active Substance: NALOXONE HYDROCHLORIDE\OXYCODONE HYDROCHLORIDE
     Indication: PAIN
     Dosage: TOTAL DAILY DOSE: 15 MG, PRN
     Route: 048
     Dates: start: 20151026
  13. MOVICOL [Concomitant]
     Active Substance: POLYETHYLENE GLYCOL 3350\POTASSIUM CHLORIDE\SODIUM BICARBONATE\SODIUM CHLORIDE
     Indication: CONSTIPATION
     Dosage: TOTAL DAILY DOSE: 8 U, PRN
     Route: 048
     Dates: start: 20160126

REACTIONS (2)
  - Malnutrition [Not Recovered/Not Resolved]
  - Malignant neoplasm progression [Fatal]

NARRATIVE: CASE EVENT DATE: 20160428
